FAERS Safety Report 5806668-7 (Version None)
Quarter: 2008Q3

REPORT INFORMATION
  Report Type: 
  Country: None (occurrence: None)
  Receive Date: 20080710
  Receipt Date: 20080630
  Transmission Date: 20090109
  Serious: Yes (Hospitalization, Disabling)
  Sender: FDA-Public Use
  Company Number: US-MERCK-0707USA04724

PATIENT
  Age: 57 Year
  Sex: Female

DRUGS (4)
  1. FOSAMAX [Suspect]
     Indication: OSTEOPENIA
     Route: 048
     Dates: start: 20020101, end: 20060320
  2. FOSAMAX [Suspect]
     Indication: OSTEOPOROSIS
     Route: 048
     Dates: start: 20020101, end: 20060320
  3. GABAPENTIN [Concomitant]
     Indication: MENOPAUSAL SYMPTOMS
     Route: 065
     Dates: start: 20050101
  4. ESTROGENS (UNSPECIFIED) [Concomitant]
     Route: 065
     Dates: start: 20040101

REACTIONS (14)
  - ARTHRALGIA [None]
  - CHEST PAIN [None]
  - CONSTIPATION [None]
  - EAR PAIN [None]
  - EXOSTOSIS [None]
  - FATIGUE [None]
  - FOOT FRACTURE [None]
  - NASAL SEPTUM DEVIATION [None]
  - OSTEONECROSIS [None]
  - PRURITUS [None]
  - SINUS DISORDER [None]
  - SKIN LESION [None]
  - TEMPERATURE INTOLERANCE [None]
  - WEIGHT DECREASED [None]
